FAERS Safety Report 4746778-9 (Version None)
Quarter: 2005Q3

REPORT INFORMATION
  Report Type: 
  Country: None (occurrence: None)
  Receive Date: 20050815
  Receipt Date: 20050811
  Transmission Date: 20060218
  Serious: Yes (Death)
  Sender: FDA-Public Use
  Company Number: 200510542BFR

PATIENT
  Age: 27 Year
  Sex: Male

DRUGS (4)
  1. CIPROFLOXACIN [Suspect]
     Dosage: ORAL
     Route: 048
     Dates: start: 20030101
  2. BACTRIM [Suspect]
     Dosage: ORAL
     Route: 048
     Dates: start: 20030101
  3. CELLCEPT [Suspect]
     Dosage: 2 G TOTAL DAILY, ORAL
     Route: 048
     Dates: start: 20020807
  4. ZYVOX [Suspect]
     Dosage: INTRAVENOUS
     Route: 042
     Dates: start: 20030101

REACTIONS (4)
  - COMA [None]
  - IMMUNOSUPPRESSION [None]
  - RESPIRATORY DISTRESS [None]
  - RESPIRATORY SYNCYTIAL VIRUS INFECTION [None]
